FAERS Safety Report 18314217 (Version 1)
Quarter: 2020Q3

REPORT INFORMATION
  Report Type: Spontaneous
  Country: SE (occurrence: SE)
  Receive Date: 20200925
  Receipt Date: 20200925
  Transmission Date: 20201103
  Serious: Yes (Death)
  Sender: FDA-Public Use
  Company Number: SE-JNJFOC-20200926738

PATIENT
  Age: 85 Year
  Sex: Female

DRUGS (15)
  1. HALDOL [Concomitant]
     Active Substance: HALOPERIDOL
     Dosage: VB
     Route: 065
     Dates: start: 20200507
  2. OXASCAND [Concomitant]
     Active Substance: OXAZEPAM
     Dosage: VB
     Route: 065
     Dates: start: 20200507
  3. OXYCODONE DEPOT [Concomitant]
     Route: 065
     Dates: start: 20191016
  4. DUPHALAC [Concomitant]
     Active Substance: LACTULOSE
     Dosage: VB
     Route: 065
     Dates: start: 20191112
  5. RISPERDAL [Suspect]
     Active Substance: RISPERIDONE
     Indication: ANXIETY
     Dosage: 2 ST KL 081 ST KL 20
     Route: 048
     Dates: start: 20200319
  6. BETOLVIDON [Concomitant]
     Active Substance: CYANOCOBALAMIN
     Dates: start: 20191125
  7. OSMOTICALLY ACTING LAXATIVES [Concomitant]
     Active Substance: UNSPECIFIED INGREDIENT
     Dosage: VB
     Dates: start: 20191125
  8. ZOPICLONE [Concomitant]
     Active Substance: ZOPICLONE
     Route: 065
     Dates: start: 20200325
  9. IPREN [Concomitant]
     Active Substance: IBUPROFEN
     Dosage: VB
     Route: 065
     Dates: start: 20191125
  10. OMEPRAZOLE. [Concomitant]
     Active Substance: OMEPRAZOLE
     Route: 065
     Dates: start: 20191125
  11. KALCIPOS?D [Concomitant]
     Active Substance: CALCIUM CARBONATE\CHOLECALCIFEROL
     Dosage: STYRKA 500MG/500IE
     Route: 065
     Dates: start: 20200319
  12. OXYNORM [Concomitant]
     Active Substance: OXYCODONE HYDROCHLORIDE
     Dosage: VB
     Route: 065
     Dates: start: 20191112
  13. ALENDRONIC ACID [Concomitant]
     Active Substance: ALENDRONIC ACID
     Route: 065
     Dates: start: 20191125
  14. LOPERAMIDE [Concomitant]
     Active Substance: LOPERAMIDE
     Dosage: VB
     Route: 065
     Dates: start: 20191125
  15. FOLIC ACID, ANHYDROUS [Concomitant]
     Active Substance: FOLIC ACID
     Route: 065
     Dates: start: 20200319

REACTIONS (1)
  - Pancreatitis acute [Fatal]

NARRATIVE: CASE EVENT DATE: 202008
